FAERS Safety Report 23851780 (Version 1)
Quarter: 2024Q2

REPORT INFORMATION
  Report Type: Other
  Country: US (occurrence: US)
  Receive Date: 20240514
  Receipt Date: 20240514
  Transmission Date: 20240715
  Serious: Yes (Hospitalization, Other)
  Sender: FDA-Public Use
  Company Number: US-CorePharma LLC-2156940

PATIENT
  Age: 68 Year
  Sex: Female

DRUGS (3)
  1. LISINOPRIL [Suspect]
     Active Substance: LISINOPRIL
     Indication: Product used for unknown indication
     Route: 065
  2. FUROSEMIDE [Concomitant]
     Active Substance: FUROSEMIDE
     Route: 042
  3. AMILORIDE HYDROCLORIDE [Concomitant]
     Route: 065

REACTIONS (2)
  - Hypoaldosteronism [Unknown]
  - Acute kidney injury [Recovered/Resolved]
